FAERS Safety Report 12130115 (Version 1)
Quarter: 2016Q1

REPORT INFORMATION
  Report Type: Spontaneous
  Country: US (occurrence: US)
  Receive Date: 20160229
  Receipt Date: 20160229
  Transmission Date: 20160526
  Serious: No
  Sender: FDA-Public Use
  Company Number: US-ACORDA-ACO_23471_2010

PATIENT
  Age: 74 Year
  Sex: Female
  Weight: 94 kg

DRUGS (8)
  1. LIPITOR [Suspect]
     Active Substance: ATORVASTATIN CALCIUM
     Indication: BLOOD CHOLESTEROL INCREASED
     Dosage: 40 MG, UNK
     Route: 048
     Dates: start: 20100810
  2. VITAMIN B12 [Concomitant]
     Active Substance: CYANOCOBALAMIN
     Dosage: DF
  3. MULTIVITAMIN [Concomitant]
     Active Substance: VITAMINS
     Dosage: DF
  4. LISINOPRIL. [Concomitant]
     Active Substance: LISINOPRIL
     Dosage: DF
  5. OMEPRAZOLE. [Concomitant]
     Active Substance: OMEPRAZOLE
     Dosage: DF
  6. ASPIRIN. [Concomitant]
     Active Substance: ASPIRIN
     Dosage: DF
  7. VALIUM [Concomitant]
     Active Substance: DIAZEPAM
     Dosage: DF
  8. AMPYRA [Suspect]
     Active Substance: DALFAMPRIDINE
     Indication: MULTIPLE SCLEROSIS
     Dosage: 10 MG, BID
     Route: 048
     Dates: start: 20100818

REACTIONS (3)
  - Pain in extremity [Unknown]
  - Muscular weakness [Unknown]
  - Paraesthesia [Unknown]

NARRATIVE: CASE EVENT DATE: 20100822
